FAERS Safety Report 7221442-5 (Version None)
Quarter: 2011Q1

REPORT INFORMATION
  Report Type: 
  Country: None (occurrence: None)
  Receive Date: 20110112
  Receipt Date: 20101228
  Transmission Date: 20110831
  Serious: Yes (Hospitalization)
  Sender: FDA-Public Use
  Company Number: JP-AMGEN-JPNCT2011000849

PATIENT

DRUGS (6)
  1. FLUOROURACIL [Suspect]
     Indication: COLORECTAL CANCER
     Route: 041
     Dates: start: 20100818, end: 20101027
  2. HUMULIN R [Concomitant]
     Route: 042
  3. PANITUMUMAB [Suspect]
     Indication: COLORECTAL CANCER
     Dosage: 6 MG/KG, Q2WK
     Route: 041
     Dates: start: 20100818, end: 20101027
  4. CALCIUM LEVOFOLINATE [Concomitant]
     Indication: COLORECTAL CANCER
     Route: 041
     Dates: start: 20100818, end: 20101027
  5. IRINOTECAN HYDROCHLORIDE [Suspect]
     Indication: COLORECTAL CANCER
     Route: 041
     Dates: start: 20100818, end: 20101027
  6. MELBIN [Concomitant]
     Route: 048

REACTIONS (3)
  - HYPOMAGNESAEMIA [None]
  - TOXIC EPIDERMAL NECROLYSIS [None]
  - DERMATITIS ACNEIFORM [None]
